FAERS Safety Report 25837572 (Version 1)
Quarter: 2025Q3

REPORT INFORMATION
  Report Type: Spontaneous
  Country: PE (occurrence: PE)
  Receive Date: 20250923
  Receipt Date: 20250923
  Transmission Date: 20251021
  Serious: Yes (Other)
  Sender: SANDOZ
  Company Number: PE-002147023-NVSC2024PE171611

PATIENT
  Sex: Female

DRUGS (2)
  1. FULVESTRANT [Suspect]
     Active Substance: FULVESTRANT
     Indication: Product used for unknown indication
     Route: 065
  2. KISQALI [Suspect]
     Active Substance: RIBOCICLIB SUCCINATE
     Indication: Breast cancer metastatic
     Dosage: 600 MG, QD, 3 X 200MG = 600
     Route: 048
     Dates: start: 20240521

REACTIONS (10)
  - Cardiac failure [Unknown]
  - Cardiac disorder [Unknown]
  - Decreased immune responsiveness [Unknown]
  - Dry skin [Unknown]
  - Alopecia [Unknown]
  - Productive cough [Unknown]
  - Agitation [Unknown]
  - Illness [Unknown]
  - Malaise [Unknown]
  - Influenza [Unknown]

NARRATIVE: CASE EVENT DATE: 20240101
